FAERS Safety Report 8804309 (Version 4)
Quarter: 2013Q3

REPORT INFORMATION
  Report Type: Spontaneous
  Country: US (occurrence: US)
  Receive Date: 20120924
  Receipt Date: 20130813
  Transmission Date: 20140515
  Serious: Yes (Hospitalization, Other)
  Sender: FDA-Public Use
  Company Number: US-BAYER-2012-098137

PATIENT
  Age: 32 Year
  Sex: Female

DRUGS (7)
  1. YAZ [Suspect]
     Dosage: UNK
  2. YASMIN [Suspect]
     Dosage: UNK
  3. ENBREL [Concomitant]
     Indication: PSORIASIS
     Dosage: 50 MG, Q 7 DAYS
     Route: 058
  4. GLUCOPHAGE [Concomitant]
     Dosage: 500 MG, TID
     Route: 048
  5. MORPHINE [Concomitant]
  6. ZOFRAN [Concomitant]
  7. HYDROCODONE/ACETAMINOPHEN [Concomitant]
     Dosage: 5-500 TABLETS
     Dates: start: 20090913

REACTIONS (9)
  - Injury [None]
  - Deep vein thrombosis [None]
  - Pulmonary embolism [None]
  - Thrombosis [None]
  - Pain [None]
  - Emotional distress [None]
  - Anxiety [None]
  - Fear [None]
  - Pain [None]
